FAERS Safety Report 6484356-4 (Version None)
Quarter: 2009Q4

REPORT INFORMATION
  Report Type: 
  Country: None (occurrence: None)
  Receive Date: 20091203
  Receipt Date: 20091119
  Transmission Date: 20100525
  Serious: Yes (Hospitalization)
  Sender: FDA-Public Use
  Company Number: SPV1-2009-02254

PATIENT
  Age: 9 Year
  Sex: Male

DRUGS (1)
  1. ELAPRASE [Suspect]
     Indication: MUCOPOLYSACCHARIDOSIS II
     Dosage: 0.5 MG, 1X/WEEK, IV DRIP
     Route: 041
     Dates: start: 20060922

REACTIONS (1)
  - OBSTRUCTIVE AIRWAYS DISORDER [None]
